FAERS Safety Report 4585508-0 (Version None)
Quarter: 2005Q1

REPORT INFORMATION
  Report Type: 
  Country: None (occurrence: None)
  Receive Date: 20050115
  Receipt Date: 20050115
  Transmission Date: 20050727
  Serious: No
  Sender: FDA-Public Use
  Company Number: None

PATIENT
  Age: 74 Year
  Sex: Female

DRUGS (1)
  1. ACTONEL [Suspect]
     Dosage: TABLET

REACTIONS (4)
  - BLOOD CALCIUM ABNORMAL [None]
  - CARDIAC ARREST [None]
  - MEDICATION ERROR [None]
  - TREATMENT NONCOMPLIANCE [None]
